FAERS Safety Report 5442309-9 (Version None)
Quarter: 2007Q3

REPORT INFORMATION
  Report Type: 
  Country: None (occurrence: None)
  Receive Date: 20070731
  Receipt Date: 20070613
  Transmission Date: 20080115
  Serious: No
  Sender: FDA-Public Use
  Company Number: US200706003226

PATIENT
  Age: 63 Year
  Sex: Female
  Weight: 109.8 kg

DRUGS (3)
  1. BYETTA [Suspect]
     Indication: WEIGHT INCREASED
     Dosage: 5 UG, 2/D, SUBCUTANEOUS; 10 UG, 2/D, SUBCUTANEOUS
     Route: 058
     Dates: start: 20070512, end: 20070512
  2. BYETTA [Suspect]
     Indication: WEIGHT INCREASED
     Dosage: 5 UG, 2/D, SUBCUTANEOUS; 10 UG, 2/D, SUBCUTANEOUS
     Route: 058
     Dates: start: 20070612
  3. EXENATIDE (EXENATIDE PEN) [Concomitant]

REACTIONS (2)
  - EARLY SATIETY [None]
  - INJECTION SITE WARMTH [None]
